FAERS Safety Report 22103535 (Version 1)
Quarter: 2023Q1

REPORT INFORMATION
  Report Type: Spontaneous
  Country: PL (occurrence: PL)
  Receive Date: 20230316
  Receipt Date: 20230316
  Transmission Date: 20230418
  Serious: Yes (Hospitalization)
  Sender: FDA-Public Use
  Company Number: PL-BoehringerIngelheim-2023-BI-225165

PATIENT
  Age: 80 Year
  Sex: Female

DRUGS (1)
  1. PRADAXA [Suspect]
     Active Substance: DABIGATRAN ETEXILATE MESYLATE
     Indication: Product used for unknown indication
     Dosage: LAST DOSE WAS PROBABLY ABOUT 12 HOURS EARLIER

REACTIONS (2)
  - Internal haemorrhage [Unknown]
  - Head injury [Unknown]
